FAERS Safety Report 6692825-7 (Version None)
Quarter: 2010Q2

REPORT INFORMATION
  Report Type: 
  Country: None (occurrence: None)
  Receive Date: 20100419
  Receipt Date: 20100412
  Transmission Date: 20101027
  Serious: Yes (Hospitalization)
  Sender: FDA-Public Use
  Company Number: 1000013146

PATIENT
  Age: 79 Year
  Sex: Female

DRUGS (5)
  1. BYSTOLIC [Suspect]
     Indication: HYPERTENSION
     Dosage: 2 . 5 MG (2.5 MG, 1 IN 1 D), ORAL
     Route: 048
     Dates: start: 20091102, end: 20100401
  2. LASIX (40 MILLIGRAM, TABLETS) [Concomitant]
  3. POTASSIUM (10 MILLIEQUIVALENTS, TABLETS) [Concomitant]
  4. XANAX [Concomitant]
  5. LIBRAX (TABLETS) [Concomitant]

REACTIONS (7)
  - DIARRHOEA [None]
  - DIZZINESS [None]
  - DYSPNOEA [None]
  - GASTROENTERITIS VIRAL [None]
  - NAUSEA [None]
  - PERIPHERAL COLDNESS [None]
  - SINUSITIS [None]
